FAERS Safety Report 8570429-9 (Version None)
Quarter: 2012Q3

REPORT INFORMATION
  Report Type: 
  Country: None (occurrence: None)
  Receive Date: 20120803
  Receipt Date: 20120725
  Transmission Date: 20120928
  Serious: Yes (Hospitalization)
  Sender: FDA-Public Use
  Company Number: US-ASTRAZENECA-2012SE39057

PATIENT
  Age: 54 Year
  Sex: Female

DRUGS (3)
  1. SYMBICORT [Suspect]
     Route: 055
  2. NEXIUM [Suspect]
     Route: 048
  3. RHINOCORT [Suspect]
     Route: 045

REACTIONS (7)
  - MALAISE [None]
  - FOOT FRACTURE [None]
  - FALL [None]
  - LIGAMENT SPRAIN [None]
  - GASTRIC DISORDER [None]
  - DRUG DOSE OMISSION [None]
  - ASTHMA [None]
